FAERS Safety Report 7659036 (Version 2)
Quarter: 2013Q4

REPORT INFORMATION
  Report Type: Report from Study
  Country: IE (occurrence: IE)
  Receive Date: 20101108
  Receipt Date: 20131111
  Transmission Date: 20140711
  Serious: Yes (Life-Threatening, Other)
  Sender: FDA-Public Use
  Company Number: IE-BIOGENIDEC-2010BI037482

PATIENT
  Age: 45 Year
  Sex: Female
  Weight: 52 kg

DRUGS (6)
  1. TYSABRI [Suspect]
     Indication: MULTIPLE SCLEROSIS
     Route: 042
     Dates: start: 20080302, end: 20090616
  2. CALCIUM AND VITAMIN D [Concomitant]
     Indication: PROPHYLAXIS
  3. EFFEXOR XL [Concomitant]
     Indication: DEPRESSION
     Dates: start: 2006
  4. RITALIN [Concomitant]
     Indication: DEPRESSION
     Dates: start: 2006
  5. DETRUSITOL [Concomitant]
     Indication: BLADDER DISORDER
     Dates: start: 2008
  6. ZOTON [Concomitant]
     Indication: GASTRIC DISORDER
     Dates: start: 2008

REACTIONS (1)
  - Breast cancer [Not Recovered/Not Resolved]
